FAERS Safety Report 8909187 (Version 2)
Quarter: 2012Q4

REPORT INFORMATION
  Report Type: Spontaneous
  Country: FR (occurrence: None)
  Receive Date: 20121107
  Receipt Date: 20121128
  Transmission Date: 20130627
  Serious: Yes (Death, Hospitalization, Other)
  Sender: FDA-Public Use
  Company Number: AUR-APL-2012-04739

PATIENT
  Age: 21 Year
  Sex: Male

DRUGS (2)
  1. OLANZAPINE [Suspect]
     Indication: CATATONIA
  2. LORAZEPAM (LORAZEPAM) [Suspect]
     Indication: CATATONIA

REACTIONS (3)
  - Catatonia [None]
  - Condition aggravated [None]
  - No therapeutic response [None]
